FAERS Safety Report 6960130-7 (Version None)
Quarter: 2010Q3

REPORT INFORMATION
  Report Type: 
  Country: None (occurrence: None)
  Receive Date: 20100901
  Receipt Date: 20100823
  Transmission Date: 20110219
  Serious: Yes (Other)
  Sender: FDA-Public Use
  Company Number: PHHY2010JP56224

PATIENT

DRUGS (2)
  1. ZADITEN [Suspect]
     Route: 048
  2. PERIACTIN [Concomitant]

REACTIONS (1)
  - FEBRILE CONVULSION [None]
